FAERS Safety Report 8132880-0 (Version None)
Quarter: 2012Q1

REPORT INFORMATION
  Report Type: 
  Country: None (occurrence: None)
  Receive Date: 20120103
  Receipt Date: 20111114
  Transmission Date: 20120608
  Serious: No
  Sender: FDA-Public Use
  Company Number: AE-2011-003437

PATIENT
  Age: 68 Year
  Sex: Male
  Weight: 87.0906 kg

DRUGS (3)
  1. RIBAVIRIN [Concomitant]
  2. PEGASYS [Concomitant]
  3. INCIVEK [Suspect]
     Dosage: 2250 MG (750 MG,3 IN 1 D)
     Dates: start: 20110817, end: 20111111

REACTIONS (1)
  - PRURITUS [None]
